FAERS Safety Report 10526470 (Version 2)
Quarter: 2014Q4

REPORT INFORMATION
  Report Type: Spontaneous
  Country: US (occurrence: US)
  Receive Date: 20141020
  Receipt Date: 20141112
  Transmission Date: 20150528
  Serious: No
  Sender: FDA-Public Use
  Company Number: US-B.I. PHARMACEUTICALS,INC./RIDGEFIELD-2014-BI-48078BP

PATIENT
  Age: 79 Year
  Sex: Female
  Weight: 77.56 kg

DRUGS (3)
  1. NASAL OXYGEN AT 4 LITERS PER MINUTE CONTINUOUS [Concomitant]
     Indication: PRODUCT USED FOR UNKNOWN INDICATION
     Dosage: ROUTE : NASAL;DOSE PER APPLICATION: 4 LITERS PER MINUTE
     Route: 050
     Dates: start: 2009
  2. COMBIVENT [Suspect]
     Active Substance: ALBUTEROL SULFATE\IPRATROPIUM BROMIDE
     Indication: CHRONIC OBSTRUCTIVE PULMONARY DISEASE
     Dosage: STRENGTH: 18MCG/ 103MCG; DAILY DOSE: 72MCG/ 412MCG
     Route: 055
     Dates: start: 2009
  3. COMBIVENT [Suspect]
     Active Substance: ALBUTEROL SULFATE\IPRATROPIUM BROMIDE
     Indication: CHRONIC OBSTRUCTIVE PULMONARY DISEASE
     Dosage: STRENGTH: 20 MCG / 100 MCG; DAILY DOSE: 60 MCG/ 300 MCG
     Route: 055
     Dates: start: 2012

REACTIONS (5)
  - Drug prescribing error [Not Recovered/Not Resolved]
  - Fall [Recovered/Resolved]
  - Product quality issue [Not Recovered/Not Resolved]
  - Dyspnoea [Not Recovered/Not Resolved]
  - Product quality issue [Recovered/Resolved]

NARRATIVE: CASE EVENT DATE: 2012
